FAERS Safety Report 18453946 (Version 1)
Quarter: 2020Q4

REPORT INFORMATION
  Report Type: Spontaneous
  Country: FR (occurrence: FR)
  Receive Date: 20201102
  Receipt Date: 20201102
  Transmission Date: 20210114
  Serious: Yes (Hospitalization, Other)
  Sender: FDA-Public Use
  Company Number: FR-PFIZER INC-2020423580

PATIENT
  Age: 72 Year
  Sex: Male

DRUGS (8)
  1. LAROXYL [Concomitant]
     Active Substance: AMITRIPTYLINE HYDROCHLORIDE
     Dosage: UNK
     Route: 048
     Dates: end: 20200520
  2. BRAFTOVI [Suspect]
     Active Substance: ENCORAFENIB
     Indication: METASTATIC MALIGNANT MELANOMA
     Dosage: 6 DF, DAILY
     Route: 048
     Dates: start: 20200331, end: 20200515
  3. SERESTA [Concomitant]
     Active Substance: OXAZEPAM
     Dosage: UNK
     Route: 048
  4. PARACETAMOL [Concomitant]
     Active Substance: ACETAMINOPHEN
     Dosage: UNK
     Route: 048
  5. OPDIVO [Suspect]
     Active Substance: NIVOLUMAB
     Indication: METASTATIC MALIGNANT MELANOMA
     Dosage: UNK
     Route: 042
     Dates: start: 201909, end: 20200226
  6. MEKTOVI [Suspect]
     Active Substance: BINIMETINIB
     Indication: METASTATIC MALIGNANT MELANOMA
     Dosage: 6 DF, DAILY
     Route: 048
     Dates: start: 20200331, end: 20200515
  7. INNOHEP [Concomitant]
     Active Substance: TINZAPARIN SODIUM
     Dosage: UNK
     Route: 058
  8. CORTANCYL [Concomitant]
     Active Substance: PREDNISONE
     Dosage: 7.5 MG, DAILY
     Route: 048

REACTIONS (3)
  - Acute polyneuropathy [Recovering/Resolving]
  - Neuropathy peripheral [Recovering/Resolving]
  - Ataxia [Recovering/Resolving]

NARRATIVE: CASE EVENT DATE: 20200515
